FAERS Safety Report 15067129 (Version 1)
Quarter: 2018Q2

REPORT INFORMATION
  Report Type: Spontaneous
  Country: JP (occurrence: JP)
  Receive Date: 20180626
  Receipt Date: 20180626
  Transmission Date: 20180711
  Serious: Yes (Other)
  Sender: FDA-Public Use
  Company Number: JP-GLAXOSMITHKLINE-JP2018JPN109182

PATIENT
  Age: 58 Year
  Sex: Male
  Weight: 79 kg

DRUGS (3)
  1. LIPITOR [Concomitant]
     Active Substance: ATORVASTATIN CALCIUM
     Dosage: UNK UNK, U
     Dates: start: 201701
  2. ETHYL ICOSAPENTATE [Concomitant]
     Active Substance: ICOSAPENT ETHYL
     Dosage: UNK
     Dates: start: 201604
  3. ZAGALLO [Suspect]
     Active Substance: DUTASTERIDE
     Indication: ANDROGENETIC ALOPECIA
     Dosage: UNK
     Route: 048
     Dates: start: 20171024, end: 20180119

REACTIONS (3)
  - Pyrexia [Unknown]
  - Pneumonia [Unknown]
  - Liver function test increased [Recovered/Resolved]

NARRATIVE: CASE EVENT DATE: 20180115
